FAERS Safety Report 6828685-0 (Version None)
Quarter: 2010Q3

REPORT INFORMATION
  Report Type: 
  Country: None (occurrence: None)
  Receive Date: 20100706
  Receipt Date: 20100618
  Transmission Date: 20110219
  Serious: Yes (Death)
  Sender: FDA-Public Use
  Company Number: 2010BI021565

PATIENT

DRUGS (12)
  1. ZEVALIN [Suspect]
     Indication: NON-HODGKIN'S LYMPHOMA
     Dosage: ; 1X; IV
     Route: 042
     Dates: start: 20040902, end: 20040902
  2. RITUXIMAB [Concomitant]
  3. CYCLOPHOSPHAMIDE [Concomitant]
  4. DOXORUBICIN HCL [Concomitant]
  5. VINCRISTINE SULFATE [Concomitant]
  6. PREDNISONE [Concomitant]
  7. CARMUSTINE [Concomitant]
  8. ETOPOSIDE [Concomitant]
  9. CYTARABINE [Concomitant]
  10. MELPHALAN [Concomitant]
  11. CHLORAMBUCIL [Concomitant]
  12. RITUXIMAB [Concomitant]

REACTIONS (3)
  - MYELODYSPLASTIC SYNDROME [None]
  - PANCYTOPENIA [None]
  - SUBDURAL HAEMATOMA [None]
